FAERS Safety Report 10408371 (Version 4)
Quarter: 2015Q1

REPORT INFORMATION
  Report Type: Spontaneous
  Country: IT (occurrence: IT)
  Receive Date: 20140826
  Receipt Date: 20150106
  Transmission Date: 20150720
  Serious: Yes (Life-Threatening)
  Sender: FDA-Public Use
  Company Number: IT-ACCORD-025467

PATIENT
  Age: 59 Year
  Sex: Male
  Weight: 71 kg

DRUGS (10)
  1. IVABRADINE/IVABRADINE HYDROCHLORIDE [Suspect]
     Active Substance: IVABRADINE HYDROCHLORIDE
     Indication: CARDIAC FAILURE
     Route: 048
     Dates: start: 20140708, end: 20140811
  2. ALLOPURINOL/ALLOPURINOL SODIUM [Suspect]
     Active Substance: ALLOPURINOL SODIUM
     Indication: HYPERURICAEMIA
     Route: 048
     Dates: start: 20140708, end: 20140811
  3. RAMIPRIL. [Suspect]
     Active Substance: RAMIPRIL
     Indication: CARDIAC FAILURE
     Route: 048
     Dates: start: 20140708, end: 20140811
  4. WARFARIN [Concomitant]
     Active Substance: WARFARIN
     Dates: start: 20140410, end: 20140811
  5. LUVION [Concomitant]
     Active Substance: CANRENONE
     Indication: CARDIAC FAILURE
     Route: 048
     Dates: start: 20140410, end: 20140811
  6. LASIX [Concomitant]
     Active Substance: FUROSEMIDE
     Indication: CARDIAC FAILURE
     Dosage: 750 MG
     Route: 048
     Dates: start: 20140410, end: 20140811
  7. BISOPROLOL [Suspect]
     Active Substance: BISOPROLOL
     Indication: MYOCARDIAL ISCHAEMIA
     Route: 048
     Dates: start: 20140708, end: 20140811
  8. LORATADINE. [Suspect]
     Active Substance: LORATADINE
     Indication: PRODUCT USED FOR UNKNOWN INDICATION
     Dosage: 1 DF DAILY
     Dates: start: 20140708, end: 20140811
  9. METOLAZONE. [Suspect]
     Active Substance: METOLAZONE
     Indication: CARDIAC FAILURE
     Dosage: 1 DF DAILY
     Route: 048
     Dates: start: 20140708, end: 20140811
  10. ACETYLSALICYLIC ACID [Concomitant]
     Active Substance: ASPIRIN
     Indication: MYOCARDIAL ISCHAEMIA
     Dosage: 100 MG
     Route: 048
     Dates: start: 20140410, end: 20140811

REACTIONS (5)
  - Dermatitis exfoliative [Recovering/Resolving]
  - Acute kidney injury [Recovering/Resolving]
  - Shock [Recovering/Resolving]
  - Erythema multiforme [Recovering/Resolving]
  - Multi-organ failure [Recovering/Resolving]

NARRATIVE: CASE EVENT DATE: 20140721
